FAERS Safety Report 8098412-0 (Version None)
Quarter: 2012Q1

REPORT INFORMATION
  Report Type: 
  Country: None (occurrence: None)
  Receive Date: 20120131
  Receipt Date: 20120113
  Transmission Date: 20120608
  Serious: Yes (Hospitalization)
  Sender: FDA-Public Use
  Company Number: JP-MERCK-1111USA03017

PATIENT
  Age: 73 Year
  Sex: Female

DRUGS (12)
  1. PIOGLITAZONE HYDROCHLORIDE [Concomitant]
     Route: 065
     Dates: start: 20111001, end: 20111110
  2. FOSAMAX [Concomitant]
     Route: 048
     Dates: start: 20110129, end: 20111110
  3. FLAVIN ADENINE DINUCLEOTIDE SODIUM [Concomitant]
     Route: 065
     Dates: start: 20111017, end: 20111110
  4. CALFINA [Concomitant]
     Route: 065
     Dates: start: 20110129, end: 20111110
  5. PYDOXAL [Concomitant]
     Route: 065
     Dates: start: 20111017, end: 20111110
  6. CRESTOR [Concomitant]
     Dosage: IN THE EVENING
     Route: 065
     Dates: start: 20111001, end: 20111110
  7. SOFALCONE [Concomitant]
     Route: 065
     Dates: start: 20111017, end: 20111110
  8. JANUVIA [Suspect]
     Indication: TYPE 2 DIABETES MELLITUS
     Route: 048
     Dates: start: 20110625, end: 20111110
  9. MENATETRENONE [Concomitant]
     Dosage: IN THE EVENING
     Route: 065
     Dates: start: 20110324, end: 20111110
  10. FOLICRON [Concomitant]
     Route: 065
     Dates: start: 20111017, end: 20111110
  11. CONCZYME N [Concomitant]
     Route: 065
     Dates: start: 20111017, end: 20111110
  12. APHTASOLON [Concomitant]
     Route: 065
     Dates: start: 20111017, end: 20111110

REACTIONS (3)
  - APHTHOUS STOMATITIS [None]
  - STOMATITIS [None]
  - DYSGEUSIA [None]
